FAERS Safety Report 9222573 (Version 1)
Quarter: 2013Q2

REPORT INFORMATION
  Report Type: Spontaneous
  Country: FR (occurrence: FR)
  Receive Date: 20130410
  Receipt Date: 20130410
  Transmission Date: 20140414
  Serious: Yes (Hospitalization)
  Sender: FDA-Public Use
  Company Number: FR-ROCHE-1207853

PATIENT
  Sex: Male

DRUGS (1)
  1. ACTILYSE [Suspect]
     Indication: PRODUCT USED FOR UNKNOWN INDICATION
     Route: 042
     Dates: start: 20100818

REACTIONS (2)
  - Respiratory distress [Unknown]
  - Maternal exposure timing unspecified [Unknown]
